FAERS Safety Report 9916885 (Version 1)
Quarter: 2014Q1

REPORT INFORMATION
  Report Type: Spontaneous
  Country: US (occurrence: US)
  Receive Date: 20140221
  Receipt Date: 20140221
  Transmission Date: 20141002
  Serious: Yes (Other)
  Sender: FDA-Public Use
  Company Number: US-009507513-1402USA008879

PATIENT
  Age: 52 Year
  Sex: Female

DRUGS (3)
  1. JANUMET [Suspect]
     Indication: TYPE 2 DIABETES MELLITUS
     Dosage: UNK, QD, STRENGTH-50/1000MG
     Route: 048
     Dates: start: 2011
  2. INSULIN [Concomitant]
  3. PRANDIN (REPAGLINIDE) [Concomitant]
     Dosage: UNK, PRN

REACTIONS (2)
  - Adverse event [Not Recovered/Not Resolved]
  - Inappropriate schedule of drug administration [Unknown]
